FAERS Safety Report 8264259-5 (Version None)
Quarter: 2012Q2

REPORT INFORMATION
  Report Type: 
  Country: None (occurrence: None)
  Receive Date: 20120406
  Receipt Date: 20120402
  Transmission Date: 20120825
  Serious: Yes (Other)
  Sender: FDA-Public Use
  Company Number: US-PFIZER INC-2012046185

PATIENT
  Sex: Female

DRUGS (16)
  1. SAVELLA [Concomitant]
     Dosage: 100 MG, 2X/DAY (BID)
  2. MORPHINE [Concomitant]
     Dosage: 150 MG, 3X/DAY (TID)
  3. SUTENT [Suspect]
     Indication: METASTATIC RENAL CELL CARCINOMA
     Dosage: 50 MG, 1X/DAY (DAILY FOR 4 WEEKS AND 2 WEEKS OFF)
     Route: 048
     Dates: start: 20120131, end: 20120220
  4. GABAPENTIN [Concomitant]
     Dosage: 600 MG, 1X/DAY
  5. FLUVOXAMINE [Concomitant]
     Dosage: 100 MG, 1X/DAY
  6. HYDROMORPHONE [Concomitant]
     Dosage: 2 MG, 4X/DAY
  7. FISH OIL [Concomitant]
     Dosage: UNK
  8. ALPRAZOLAM [Concomitant]
     Dosage: 3 MG, UNK (EVERY OTHER DAY)
  9. ZINC [Concomitant]
     Dosage: UNK
  10. SUTENT [Suspect]
     Dosage: 37.5 MG, 1X/DAY
     Dates: start: 20120308
  11. NEXIUM [Concomitant]
     Dosage: 40 MG, UNK (DAILY)
  12. MAGNESIUM [Concomitant]
     Dosage: 1250 MG, 1X/DAY
  13. TRAZODONE [Concomitant]
     Dosage: 100 MG, UNK (EVERY OTHER DAY)
  14. VITAMIN B COMPLEX CAP [Concomitant]
     Dosage: UNK
  15. LOVAZA [Concomitant]
     Dosage: 3 MG, 1X/DAY
  16. TEMAZEPAM [Concomitant]
     Dosage: 60 MG, UNK (EVERY OTHER DAY AT BEDTIME)

REACTIONS (1)
  - HYPERTENSION [None]
